FAERS Safety Report 25968501 (Version 1)
Quarter: 2025Q4

REPORT INFORMATION
  Report Type: Spontaneous
  Country: EU (occurrence: EU)
  Receive Date: 20251028
  Receipt Date: 20251028
  Transmission Date: 20260118
  Serious: Yes (Other)
  Sender: TEVA
  Company Number: None

PATIENT
  Age: 75 Year
  Sex: Female

DRUGS (2)
  1. AMOXICILLIN [Suspect]
     Active Substance: AMOXICILLIN
     Indication: Dermo-hypodermitis
     Dosage: 1 G X 3/DAY
     Route: 065
     Dates: start: 20250916, end: 20250919
  2. AUGMENTIN [Suspect]
     Active Substance: AMOXICILLIN\CLAVULANATE POTASSIUM
     Indication: Dermo-hypodermitis
     Dosage: 1 G X 3/DAY
     Route: 065
     Dates: start: 20250916, end: 20250919

REACTIONS (2)
  - Rash papular [Not Recovered/Not Resolved]
  - Skin reaction [Not Recovered/Not Resolved]

NARRATIVE: CASE EVENT DATE: 20250919
